FAERS Safety Report 5360077-6 (Version None)
Quarter: 2007Q2

REPORT INFORMATION
  Report Type: 
  Country: None (occurrence: None)
  Receive Date: 20070618
  Receipt Date: 20060922
  Transmission Date: 20071010
  Serious: No
  Sender: FDA-Public Use
  Company Number: US-ASTRAZENECA-2006UW18560

PATIENT
  Sex: Female

DRUGS (3)
  1. FASLODEX [Suspect]
     Indication: METASTASIS
     Route: 030
  2. RADIATION THERAPY [Concomitant]
  3. ZOMETA [Concomitant]

REACTIONS (2)
  - PYREXIA [None]
  - THIRST [None]
